FAERS Safety Report 9195011 (Version 1)
Quarter: 2013Q1

REPORT INFORMATION
  Report Type: Spontaneous
  Country: US (occurrence: US)
  Receive Date: 20130328
  Receipt Date: 20130328
  Transmission Date: 20140127
  Serious: No
  Sender: FDA-Public Use
  Company Number: US-ALLERGAN-1214203US

PATIENT
  Sex: Female

DRUGS (3)
  1. LATISSE 0.03% [Suspect]
     Indication: GROWTH OF EYELASHES
     Dosage: 2 GTT, QHS
     Route: 061
  2. SYSTANE [Concomitant]
     Indication: DRY EYE
     Route: 047
  3. REFRESH                            /00007001/ [Concomitant]
     Indication: DRY EYE
     Route: 047

REACTIONS (9)
  - Dermatitis [Recovered/Resolved]
  - Eyelid exfoliation [Recovered/Resolved]
  - Eyelid exfoliation [Recovered/Resolved]
  - Eyelid disorder [Recovered/Resolved]
  - Eyelid ptosis [Recovered/Resolved]
  - Eyelid irritation [Recovered/Resolved]
  - Eyelids pruritus [Recovered/Resolved]
  - Erythema of eyelid [Recovered/Resolved]
  - Eyelid irritation [Recovered/Resolved]
